FAERS Safety Report 8345810-3 (Version None)
Quarter: 2012Q2

REPORT INFORMATION
  Report Type: 
  Country: None (occurrence: None)
  Receive Date: 20120509
  Receipt Date: 20120426
  Transmission Date: 20120825
  Serious: Yes (Other)
  Sender: FDA-Public Use
  Company Number: BE-AMGEN-BELSP2012021662

PATIENT
  Age: 74 Year
  Sex: Male
  Weight: 90 kg

DRUGS (2)
  1. NEORAL [Concomitant]
     Dosage: UNK
     Dates: end: 20120301
  2. ENBREL [Suspect]
     Indication: PSORIASIS
     Dosage: 50 MG, WEEKLY
     Route: 058
     Dates: start: 20120301

REACTIONS (4)
  - DRY SKIN [None]
  - PSORIASIS [None]
  - WOUND HAEMORRHAGE [None]
  - SKIN EXFOLIATION [None]
